FAERS Safety Report 12348785 (Version 1)
Quarter: 2016Q2

REPORT INFORMATION
  Report Type: Spontaneous
  Country: US (occurrence: US)
  Receive Date: 20160509
  Receipt Date: 20160509
  Transmission Date: 20160815
  Serious: No
  Sender: FDA-Public Use
  Company Number: US-PFIZER INC-2016232349

PATIENT
  Age: 70 Year
  Sex: Male

DRUGS (4)
  1. PREDNISONE. [Concomitant]
     Active Substance: PREDNISONE
  2. XELJANZ [Suspect]
     Active Substance: TOFACITINIB CITRATE
     Indication: RHEUMATOID ARTHRITIS
     Dosage: 5 MG, (STARTED ON FRIDAY AND TOOK THREE DOSES OVER THE NEXT DAY AND A HALF)
  3. METHOTREXATE [Concomitant]
     Active Substance: METHOTREXATE
  4. FOLIC ACID. [Concomitant]
     Active Substance: FOLIC ACID

REACTIONS (5)
  - Headache [Unknown]
  - Feeling abnormal [Unknown]
  - Abdominal pain upper [Unknown]
  - Diarrhoea [Unknown]
  - Myalgia [Unknown]
